FAERS Safety Report 9411474 (Version 1)
Quarter: 2013Q3

REPORT INFORMATION
  Report Type: Spontaneous
  Country: CA (occurrence: CA)
  Receive Date: 20130722
  Receipt Date: 20130722
  Transmission Date: 20140515
  Serious: Yes (Other)
  Sender: FDA-Public Use
  Company Number: CA-ROCHE-740620

PATIENT
  Age: 9 Year
  Sex: Female

DRUGS (8)
  1. RITUXIMAB [Suspect]
     Indication: GRANULOMATOSIS WITH POLYANGIITIS
     Route: 065
  2. PREDNISONE [Suspect]
     Indication: GRANULOMATOSIS WITH POLYANGIITIS
     Dosage: 2 MG/KG, QD
     Route: 065
  3. PREDNISONE [Suspect]
     Dosage: 0.3 MG/KG, QD
     Route: 065
  4. PREDNISONE [Suspect]
     Dosage: 0.5 MG/KG, QD
     Route: 065
  5. MYCOPHENOLIC ACID [Suspect]
     Indication: GRANULOMATOSIS WITH POLYANGIITIS
     Dosage: 28 MG/KG, QD
     Route: 065
  6. CYCLOPHOSPHAMIDE [Suspect]
     Indication: GRANULOMATOSIS WITH POLYANGIITIS
     Dosage: UNK
     Route: 042
  7. METHOTREXATE [Suspect]
     Indication: PRODUCT USED FOR UNKNOWN INDICATION
     Route: 048
  8. CO-TRIMOXAZOLE [Concomitant]
     Indication: INFECTION PROPHYLAXIS
     Dosage: 4 MG/KG, QD
     Route: 065

REACTIONS (1)
  - Pneumocystis jirovecii pneumonia [Recovered/Resolved]
